FAERS Safety Report 6139445-0 (Version None)
Quarter: 2009Q1

REPORT INFORMATION
  Report Type: 
  Country: None (occurrence: None)
  Receive Date: 20090324
  Receipt Date: 20090317
  Transmission Date: 20090719
  Serious: Yes (Death)
  Sender: FDA-Public Use
  Company Number: 1-17863771

PATIENT
  Sex: Female

DRUGS (2)
  1. FENTANYL-50 [Suspect]
     Indication: HYSTERECTOMY
     Dosage: 1 PATCH, ONCE, TRANSDERMAL
     Route: 062
     Dates: start: 20080318, end: 20080320
  2. PERCOCET [Suspect]
     Indication: HYSTERECTOMY
     Dosage: EVERY 3 HOURS PRN
     Dates: end: 20080320

REACTIONS (3)
  - INCORRECT DOSE ADMINISTERED [None]
  - RESPIRATORY ARREST [None]
  - UNRESPONSIVE TO STIMULI [None]
